FAERS Safety Report 21799688 (Version 1)
Quarter: 2022Q4

REPORT INFORMATION
  Report Type: Spontaneous
  Country: US (occurrence: None)
  Receive Date: 20221230
  Receipt Date: 20221230
  Transmission Date: 20230113
  Serious: Yes (Hospitalization)
  Sender: FDA-Public Use
  Company Number: None

PATIENT
  Age: 81 Year
  Sex: Female

DRUGS (2)
  1. STELARA [Suspect]
     Active Substance: USTEKINUMAB
     Indication: Crohn^s disease
     Dosage: INJECT 90 MG UNDER THE SKIN (SUBCUTANEOUS INJECTION) EVERY 8 WEEKS?
     Route: 058
     Dates: start: 20210420
  2. IMDUR TAB ER [Concomitant]

REACTIONS (4)
  - Fall [None]
  - Upper limb fracture [None]
  - Clavicle fracture [None]
  - Ulna fracture [None]

NARRATIVE: CASE EVENT DATE: 20221226
